FAERS Safety Report 8207631-1 (Version None)
Quarter: 2012Q1

REPORT INFORMATION
  Report Type: 
  Country: None (occurrence: None)
  Receive Date: 20120314
  Receipt Date: 20120312
  Transmission Date: 20120608
  Serious: Yes (Death, Other)
  Sender: FDA-Public Use
  Company Number: FR-BAYER-2012-023900

PATIENT
  Age: 47 Year
  Sex: Male

DRUGS (6)
  1. XANAX [Concomitant]
  2. MIRTAZAPINE [Concomitant]
  3. ALDACTONE [Concomitant]
  4. LASIX [Concomitant]
  5. METHADON HCL TAB [Concomitant]
  6. NEXAVAR [Suspect]
     Indication: HEPATIC NEOPLASM MALIGNANT
     Dosage: 400 MG, BID
     Route: 048
     Dates: start: 20120119, end: 20120124

REACTIONS (4)
  - ALTERED STATE OF CONSCIOUSNESS [None]
  - HYPERKALAEMIA [None]
  - CARDIAC ARREST [None]
  - GENERAL PHYSICAL HEALTH DETERIORATION [None]
